FAERS Safety Report 12416442 (Version 2)
Quarter: 2016Q2

REPORT INFORMATION
  Report Type: Spontaneous
  Country: IT (occurrence: IT)
  Receive Date: 20160530
  Receipt Date: 20160616
  Transmission Date: 20160815
  Serious: Yes (Other)
  Sender: FDA-Public Use
  Company Number: IT-PFIZER INC-2016263727

PATIENT
  Age: 56 Year
  Sex: Female

DRUGS (6)
  1. FLUOROURACIL. [Suspect]
     Active Substance: FLUOROURACIL
     Dosage: 4300 MG, CYCLIC
     Route: 042
     Dates: start: 20151112
  2. SODIUM FOLINATE [Concomitant]
     Active Substance: LEUCOVORIN
     Dosage: 360 MG, UNK
  3. OXALIPLATIN. [Suspect]
     Active Substance: OXALIPLATIN
     Indication: ADENOCARCINOMA OF COLON
     Dosage: 150 MG, CYCLIC
     Dates: start: 20151112
  4. CARDICOR [Concomitant]
     Active Substance: BISOPROLOL
     Dosage: UNK
  5. FLUOROURACIL. [Suspect]
     Active Substance: FLUOROURACIL
     Indication: ADENOCARCINOMA OF COLON
     Dosage: 720 MG, CYCLIC
     Route: 040
     Dates: start: 20151112
  6. VALSODIUR [Concomitant]
     Dosage: UNK

REACTIONS (1)
  - Pharyngitis [Recovering/Resolving]

NARRATIVE: CASE EVENT DATE: 20160121
